FAERS Safety Report 13899797 (Version 2)
Quarter: 2017Q3

REPORT INFORMATION
  Report Type: Report from Study
  Country: CN (occurrence: CN)
  Receive Date: 20170823
  Receipt Date: 20170831
  Transmission Date: 20171127
  Serious: Yes (Other)
  Sender: FDA-Public Use
  Company Number: CN-009507513-1708CHN007331

PATIENT

DRUGS (3)
  1. BOTULINUM TOXIN TYPE A [Suspect]
     Active Substance: BOTULINUM TOXIN TYPE A
     Indication: KELOID SCAR
     Dosage: UNK, GIVEN AFTER THE FIRST INTRALESIONAL INJECTION OF BETAMETHASONE
     Route: 061
  2. DIPROSPAN [Suspect]
     Active Substance: BETAMETHASONE DIPROPIONATE\BETAMETHASONE SODIUM PHOSPHATE
     Indication: KELOID SCAR
     Dosage: UNK, ONCE EVERY 4 WEEKS FOR 3 TIMES TOTALLY
     Route: 026
  3. HYALURONIC ACID [Suspect]
     Active Substance: HYALURONIC ACID
     Indication: KELOID SCAR
     Dosage: UNK, EVERY DAY
     Route: 061

REACTIONS (1)
  - Necrosis [Unknown]
